FAERS Safety Report 12122254 (Version 1)
Quarter: 2016Q1

REPORT INFORMATION
  Report Type: Spontaneous
  Country: CA (occurrence: CA)
  Receive Date: 20160226
  Receipt Date: 20160226
  Transmission Date: 20160526
  Serious: Yes (Death)
  Sender: FDA-Public Use
  Company Number: CA-009507513-1602CAN010711

PATIENT
  Age: 57 Year
  Sex: Male

DRUGS (1)
  1. TEMODAL [Suspect]
     Active Substance: TEMOZOLOMIDE
     Indication: GLIOBLASTOMA MULTIFORME
     Dosage: 150 MG, QD
     Route: 048
     Dates: end: 20151123

REACTIONS (1)
  - Death [Fatal]

NARRATIVE: CASE EVENT DATE: 20160212
